FAERS Safety Report 5236292-9 (Version None)
Quarter: 2007Q1

REPORT INFORMATION
  Report Type: 
  Country: None (occurrence: None)
  Receive Date: 20070212
  Receipt Date: 20070206
  Transmission Date: 20070707
  Serious: Yes (Hospitalization)
  Sender: FDA-Public Use
  Company Number: JP-BOEHRINGER INGELHEIM PHARMACEUTICALS, INC.-2006-BP-12330NB

PATIENT
  Sex: Female

DRUGS (15)
  1. BI-SIFROL TABLETS [Suspect]
     Indication: PARKINSON'S DISEASE
     Route: 048
     Dates: start: 20060906
  2. ACTOS [Suspect]
     Indication: DIABETES MELLITUS
     Route: 048
     Dates: start: 20051201, end: 20061020
  3. GASTER [Suspect]
     Route: 048
     Dates: end: 20061020
  4. MEDET [Suspect]
     Indication: DIABETES MELLITUS
     Route: 048
     Dates: start: 20051201, end: 20061020
  5. MYONAL [Suspect]
     Route: 048
     Dates: end: 20061020
  6. DEPAKENE [Suspect]
     Indication: EPILEPSY
     Route: 048
     Dates: end: 20061101
  7. LOPEMIN [Suspect]
     Route: 048
     Dates: end: 20061020
  8. ARTANE [Suspect]
     Route: 048
     Dates: end: 20061101
  9. THIATON [Suspect]
     Route: 048
     Dates: start: 20051201, end: 20061020
  10. POLYFUL [Suspect]
     Route: 048
     Dates: start: 20051201, end: 20061020
  11. NOVORAPID [Suspect]
     Route: 058
     Dates: end: 20061020
  12. HOKUNALIN: TAPE [Suspect]
     Route: 062
     Dates: start: 20060811, end: 20061020
  13. CLARITHROMYCIN [Suspect]
     Dates: end: 20061020
  14. MIYA BM [Concomitant]
     Route: 048
     Dates: start: 20051201, end: 20061101
  15. MUCODYNE [Concomitant]
     Route: 048
     Dates: start: 20060616, end: 20061020

REACTIONS (1)
  - IDIOPATHIC THROMBOCYTOPENIC PURPURA [None]
